FAERS Safety Report 5994531-0 (Version None)
Quarter: 2008Q4

REPORT INFORMATION
  Report Type: 
  Country: None (occurrence: None)
  Receive Date: 20081212
  Receipt Date: 20081205
  Transmission Date: 20090506
  Serious: Yes (Disabling)
  Sender: FDA-Public Use
  Company Number: US-MERCK-0812USA01761

PATIENT
  Age: 64 Year
  Sex: Male
  Weight: 76 kg

DRUGS (14)
  1. JANUVIA [Suspect]
     Indication: DIABETES MELLITUS
     Route: 048
     Dates: start: 20081118
  2. GLYBURIDE [Concomitant]
     Route: 065
     Dates: start: 20081118
  3. ACTOS [Concomitant]
     Route: 065
     Dates: start: 20081118
  4. NITROGLYCERIN [Concomitant]
     Route: 065
  5. VYTORIN [Concomitant]
     Route: 048
  6. ASPIRIN [Concomitant]
     Route: 065
  7. TOPROL-XL [Concomitant]
     Route: 065
  8. TRICOR [Concomitant]
     Route: 065
  9. NIASPAN [Concomitant]
     Route: 065
  10. FLOMAX [Concomitant]
     Route: 065
  11. PRILOSEC [Concomitant]
     Route: 048
  12. CLARITIN [Concomitant]
     Route: 065
  13. NASONEX [Concomitant]
     Route: 065
  14. VITAMINS (UNSPECIFIED) [Concomitant]
     Route: 065

REACTIONS (4)
  - ERYTHEMA [None]
  - OEDEMA PERIPHERAL [None]
  - PAIN IN EXTREMITY [None]
  - STEVENS-JOHNSON SYNDROME [None]
